FAERS Safety Report 6024984-3 (Version None)
Quarter: 2008Q4

REPORT INFORMATION
  Report Type: 
  Country: None (occurrence: None)
  Receive Date: 20081224
  Receipt Date: 20081208
  Transmission Date: 20090506
  Serious: Yes (Hospitalization)
  Sender: FDA-Public Use
  Company Number: 8040382

PATIENT
  Age: 31 Year
  Sex: Female

DRUGS (1)
  1. METHYLPHENIDATE HCL [Suspect]
     Dosage: 80 MG /D PO
     Route: 048
     Dates: start: 20080514, end: 20081001

REACTIONS (3)
  - ABNORMAL BEHAVIOUR [None]
  - DELUSION OF GRANDEUR [None]
  - PERSECUTORY DELUSION [None]
